FAERS Safety Report 8348693-0 (Version None)
Quarter: 2012Q2

REPORT INFORMATION
  Report Type: 
  Country: None (occurrence: None)
  Receive Date: 20120510
  Receipt Date: 20120427
  Transmission Date: 20120825
  Serious: Yes (Hospitalization)
  Sender: FDA-Public Use
  Company Number: US-ELI_LILLY_AND_COMPANY-US201011002354

PATIENT
  Sex: Female

DRUGS (23)
  1. VITAMIN E                            /001105/ [Concomitant]
     Dosage: 400 IU, BID
     Route: 065
  2. BLACK COHOSH [Concomitant]
     Dosage: 540 MG, BID
     Route: 065
  3. CALCIUM +D                         /00188401/ [Concomitant]
     Dosage: UNK, BID
     Route: 065
  4. POTASSIUM CHLORIDE [Concomitant]
     Dosage: 99 MG, BID
     Route: 065
  5. VENTOLIN HFA [Concomitant]
     Dosage: UNK, QOD
     Route: 065
  6. FOLIC ACID [Concomitant]
     Dosage: UNK, UNKNOWN
     Route: 065
  7. FLAXSEED OIL [Concomitant]
     Dosage: 1000 MG, BID
     Route: 065
  8. FORTEO [Suspect]
     Indication: OSTEOPOROSIS
     Dosage: 20 UG, QD
     Route: 065
     Dates: start: 20100601
  9. METOPROLOL TARTRATE AND HYDROCHLOROTHIAZIDE [Concomitant]
     Dosage: UNK, BID
     Route: 065
  10. COZAAR [Concomitant]
     Dosage: 100 MG, QD
     Route: 065
  11. METFORMIN HCL [Concomitant]
     Dosage: 1000 MG, BID
     Route: 065
  12. VITAMIN B COMPLEX CAP [Concomitant]
     Dosage: UNK, QD
     Route: 065
  13. LIPITOR [Concomitant]
     Dosage: 40 MG, QD
     Route: 065
  14. ONGLYZA [Concomitant]
     Dosage: 5 MG, QD
     Route: 065
  15. LIVER EXTRACT [Concomitant]
     Dosage: UNK, QD
     Route: 065
  16. SINGULAIR [Concomitant]
     Dosage: 10 MG, QD
     Route: 065
  17. PEPCID AC [Concomitant]
     Dosage: 20 MG, BID
     Route: 065
  18. NUVIGIL [Concomitant]
     Dosage: 250 MG, QD
     Route: 065
  19. ZYRTEC [Concomitant]
     Dosage: 10 MG, QD
     Route: 065
  20. EFFEXOR XR [Concomitant]
     Dosage: 150 MG, QD
     Route: 065
  21. FISH OIL [Concomitant]
     Dosage: 1000 MG, QD
     Route: 065
  22. ASPIRIN [Concomitant]
     Dosage: 81 MG, BID
     Route: 065
  23. VITAMIN C [Concomitant]
     Dosage: 1000 MG, QD
     Route: 065

REACTIONS (7)
  - FATIGUE [None]
  - STRESS [None]
  - WRIST FRACTURE [None]
  - SOMNOLENCE [None]
  - HEPATIC ENZYME INCREASED [None]
  - SLEEP APNOEA SYNDROME [None]
  - WEIGHT CONTROL [None]
